FAERS Safety Report 6314178-6 (Version None)
Quarter: 2009Q3

REPORT INFORMATION
  Report Type: 
  Country: None (occurrence: None)
  Receive Date: 20090818
  Receipt Date: 20090813
  Transmission Date: 20100115
  Serious: Yes (Hospitalization, Other)
  Sender: FDA-Public Use
  Company Number: PHMT2006CA01103

PATIENT
  Sex: Female

DRUGS (7)
  1. SANDOSTATIN LAR [Suspect]
     Indication: CARCINOID TUMOUR
     Dosage: 30 MG, QMO
     Route: 030
     Dates: start: 20060130
  2. SANDOSTATIN LAR [Suspect]
     Dosage: 20 MG EVERY 4 WEEKS
     Route: 030
  3. SANDOSTATIN [Suspect]
     Route: 058
  4. ATIVAN [Concomitant]
  5. CODEINE [Concomitant]
  6. MULTI-VITAMINS [Concomitant]
  7. COTAZYM [Concomitant]

REACTIONS (20)
  - CEREBROVASCULAR ACCIDENT [None]
  - DEFAECATION URGENCY [None]
  - DIARRHOEA [None]
  - DRUG EFFECT DECREASED [None]
  - DRUG INEFFECTIVE [None]
  - FREQUENT BOWEL MOVEMENTS [None]
  - GASTROOESOPHAGEAL REFLUX DISEASE [None]
  - HEPATIC NEOPLASM [None]
  - HYDRONEPHROSIS [None]
  - HYPERCHOLESTEROLAEMIA [None]
  - INJECTION SITE MASS [None]
  - INTESTINAL OBSTRUCTION [None]
  - KIDNEY INFECTION [None]
  - MALABSORPTION [None]
  - NAUSEA [None]
  - OESOPHAGEAL PAIN [None]
  - SERUM SEROTONIN INCREASED [None]
  - VITAMIN B12 DECREASED [None]
  - VOMITING [None]
  - WEIGHT DECREASED [None]
